FAERS Safety Report 7145548-4 (Version None)
Quarter: 2010Q4

REPORT INFORMATION
  Report Type: 
  Country: None (occurrence: None)
  Receive Date: 20101208
  Receipt Date: 20101129
  Transmission Date: 20110411
  Serious: Yes (Hospitalization, Other)
  Sender: FDA-Public Use
  Company Number: RU-ROCHE-742616

PATIENT
  Age: 17 Year
  Sex: Male

DRUGS (8)
  1. ISOTRETINOIN [Suspect]
     Route: 048
     Dates: start: 20081001
  2. RANITIDINE [Concomitant]
     Dates: start: 20080101
  3. ERYTHROMYCINE [Concomitant]
     Dates: start: 20080101
  4. NYSTATIN [Concomitant]
     Dates: start: 20080101
  5. DIAZOLIN [Concomitant]
     Dates: start: 20080101
  6. POLYOXIDONIUM [Concomitant]
     Route: 042
  7. DEXAMETASONE [Concomitant]
     Route: 042
  8. VITAMIN B [Concomitant]

REACTIONS (19)
  - ALPHA 2 GLOBULIN INCREASED [None]
  - ARTHRALGIA [None]
  - ARTHRITIS [None]
  - BLOOD ALBUMIN DECREASED [None]
  - BLOOD ALKALINE PHOSPHATASE INCREASED [None]
  - BLOOD BILIRUBIN INCREASED [None]
  - BLOOD CREATINE PHOSPHOKINASE DECREASED [None]
  - BLOOD IRON DECREASED [None]
  - BODY TEMPERATURE INCREASED [None]
  - DUODENOGASTRIC REFLUX [None]
  - FATIGUE [None]
  - GASTRODUODENITIS [None]
  - IMMUNOGLOBULINS INCREASED [None]
  - PLATELET COUNT INCREASED [None]
  - RED BLOOD CELL COUNT INCREASED [None]
  - SACROILIITIS [None]
  - SPLENOMEGALY [None]
  - TACHYCARDIA [None]
  - WHITE BLOOD CELL COUNT INCREASED [None]
